FAERS Safety Report 6805782-7 (Version None)
Quarter: 2010Q2

REPORT INFORMATION
  Report Type: 
  Country: None (occurrence: None)
  Receive Date: 20100628
  Receipt Date: 20100614
  Transmission Date: 20101027
  Serious: Yes (Life-Threatening)
  Sender: FDA-Public Use
  Company Number: GB-MYLANLABS-2010S1010665

PATIENT
  Sex: Female
  Weight: 63.5 kg

DRUGS (6)
  1. VENLAFAXINE [Suspect]
     Indication: ANXIETY
     Route: 048
     Dates: start: 20100201, end: 20100401
  2. LANSOPRAZOLE [Concomitant]
     Indication: DRUG USE FOR UNKNOWN INDICATION
     Route: 048
  3. POLYETHYLENE GLYCOL 3350 POWDER FOR SOLUTION [Concomitant]
     Indication: DRUG USE FOR UNKNOWN INDICATION
     Route: 048
  4. TRIMETHOPRIM [Concomitant]
     Indication: URINARY TRACT INFECTION
     Dates: start: 20100430
  5. ZOPICLONE [Concomitant]
     Indication: DRUG USE FOR UNKNOWN INDICATION
     Route: 048
  6. ALCOHOL [Concomitant]
     Indication: DRUG USE FOR UNKNOWN INDICATION
     Route: 048

REACTIONS (2)
  - AMNESIA [None]
  - SOMNAMBULISM [None]
